FAERS Safety Report 5491348-0 (Version None)
Quarter: 2007Q4

REPORT INFORMATION
  Report Type: 
  Country: None (occurrence: None)
  Receive Date: 20071017
  Receipt Date: 20071001
  Transmission Date: 20080405
  Serious: Yes (Hospitalization)
  Sender: FDA-Public Use
  Company Number: DSA_30710_2007

PATIENT
  Age: 90 Year
  Sex: Female

DRUGS (4)
  1. ENALAPRIL MALEATE AND HYDROCHLOROTHIAZIDE [Suspect]
     Indication: HYPERTENSION
     Dosage: 20-12.5 MG ORAL
     Route: 048
     Dates: end: 20070807
  2. ACETAMINOPHEN [Concomitant]
  3. BROMAZEPAM [Concomitant]
  4. TRIMETAZIDINE HYDROCHLORIDE [Concomitant]

REACTIONS (3)
  - FALL [None]
  - RENAL FAILURE [None]
  - RIB FRACTURE [None]
